FAERS Safety Report 7139111-9 (Version None)
Quarter: 2010Q4

REPORT INFORMATION
  Report Type: 
  Country: None (occurrence: None)
  Receive Date: 20101206
  Receipt Date: 20101129
  Transmission Date: 20110411
  Serious: Yes (Hospitalization)
  Sender: FDA-Public Use
  Company Number: B0687553A

PATIENT
  Sex: Female

DRUGS (1)
  1. AUGMENTIN [Suspect]
     Indication: TONSILLITIS
     Dosage: 1G PER DAY
     Route: 048
     Dates: start: 20101113, end: 20101113

REACTIONS (3)
  - LIP OEDEMA [None]
  - PRURITUS [None]
  - RASH ERYTHEMATOUS [None]
